FAERS Safety Report 14670793 (Version 1)
Quarter: 2018Q1

REPORT INFORMATION
  Report Type: Other
  Country: FR (occurrence: FR)
  Receive Date: 20180322
  Receipt Date: 20180322
  Transmission Date: 20180509
  Serious: Yes (Hospitalization)
  Sender: FDA-Public Use
  Company Number: FR-GE HEALTHCARE LIFE SCIENCES-2018CSU001054

PATIENT

DRUGS (8)
  1. VISIPAQUE [Suspect]
     Active Substance: IODIXANOL
     Indication: EMBOLISM ARTERIAL
     Dosage: 135 ML, SINGLE
     Route: 041
     Dates: start: 20180118, end: 20180118
  2. ZYLORIC [Concomitant]
     Active Substance: ALLOPURINOL
     Dosage: 300 MG, QD
     Route: 048
  3. ZESTRIL [Concomitant]
     Active Substance: LISINOPRIL
     Dosage: 20 MG, QD
  4. KARDEGIC [Concomitant]
     Active Substance: ASPIRIN DL-LYSINE
     Dosage: 75 MG, QD
     Route: 048
  5. ELIQUIS [Concomitant]
     Active Substance: APIXABAN
     Dosage: 10 MG, QD
     Route: 048
  6. PRAVASTATIN SODIUM. [Concomitant]
     Active Substance: PRAVASTATIN SODIUM
     Dosage: 40 MG, QD
     Route: 048
  7. MOPRAL                             /00661203/ [Concomitant]
     Dosage: 20 MG, QD
     Route: 048
  8. VISIPAQUE [Suspect]
     Active Substance: IODIXANOL
     Indication: PRODUCT USED FOR UNKNOWN INDICATION
     Dosage: 97 ML, SINGLE
     Route: 041
     Dates: start: 20180117, end: 20180117

REACTIONS (2)
  - Metabolic acidosis [Recovered/Resolved]
  - Acute kidney injury [Recovered/Resolved]

NARRATIVE: CASE EVENT DATE: 20180118
